FAERS Safety Report 9213004 (Version 3)
Quarter: 2013Q2

REPORT INFORMATION
  Report Type: Spontaneous
  Country: US (occurrence: US)
  Receive Date: 20130405
  Receipt Date: 20130619
  Transmission Date: 20140414
  Serious: No
  Sender: FDA-Public Use
  Company Number: US-009507513-1304USA002264

PATIENT
  Sex: Male

DRUGS (8)
  1. REBETOL [Suspect]
     Indication: HEPATITIS C
     Dosage: UNK
     Route: 048
     Dates: start: 2010
  2. REBETOL [Suspect]
     Dosage: UNK
     Dates: start: 20090101, end: 20091201
  3. REBETOL [Suspect]
     Dosage: UNK
     Route: 048
     Dates: start: 20090102, end: 20090605
  4. REBETOL [Suspect]
     Dosage: UNK
     Route: 048
     Dates: start: 20080606, end: 20080822
  5. PEGASYS [Suspect]
     Indication: HEPATITIS C
     Dosage: UNK
     Dates: start: 2010
  6. PEGASYS [Suspect]
     Dosage: UNK
     Dates: start: 20090101, end: 20091201
  7. PEGASYS [Suspect]
     Dosage: UNK
     Dates: start: 20090102, end: 20090605
  8. PEGASYS [Suspect]
     Dosage: UNK
     Dates: start: 20080606, end: 20080822

REACTIONS (6)
  - Drug ineffective [Unknown]
  - Therapeutic response decreased [Unknown]
  - Drug ineffective [Unknown]
  - Therapeutic response decreased [Unknown]
  - Therapeutic response decreased [Unknown]
  - Drug ineffective [Unknown]
